FAERS Safety Report 7861498-X (Version None)
Quarter: 2011Q4

REPORT INFORMATION
  Report Type: 
  Country: None (occurrence: None)
  Receive Date: 20111027
  Receipt Date: 20111025
  Transmission Date: 20120403
  Serious: Yes (Death)
  Sender: FDA-Public Use
  Company Number: VE-PFIZER INC-2011251759

PATIENT
  Age: 68 Year
  Sex: Male

DRUGS (3)
  1. CADUET [Suspect]
     Indication: HYPERTENSION
     Dosage: 5 MG/10 MG, ONCE DAILY
     Route: 048
     Dates: start: 20100701
  2. GLUCOPHAGE [Concomitant]
     Indication: DIABETES MELLITUS
     Dosage: 750 MG, 1X/DAY
     Route: 048
  3. ASPIRIN [Concomitant]
     Indication: PROPHYLAXIS
     Dosage: 81 MG, 1X/DAY
     Route: 048

REACTIONS (1)
  - RESPIRATORY ARREST [None]
